FAERS Safety Report 14020661 (Version 2)
Quarter: 2018Q3

REPORT INFORMATION
  Report Type: Spontaneous
  Country: US (occurrence: US)
  Receive Date: 20170928
  Receipt Date: 20180831
  Transmission Date: 20181010
  Serious: Yes (Hospitalization, Other)
  Sender: FDA-Public Use
  Company Number: US-GLAXOSMITHKLINE-US2017GSK149752

PATIENT
  Sex: Male
  Weight: 103 kg

DRUGS (3)
  1. PREVACID [Suspect]
     Active Substance: LANSOPRAZOLE
     Indication: BARRETT^S OESOPHAGUS
  2. PREVACID [Suspect]
     Active Substance: LANSOPRAZOLE
     Indication: GASTROOESOPHAGEAL REFLUX DISEASE
  3. PREVACID [Suspect]
     Active Substance: LANSOPRAZOLE
     Indication: PEPTIC ULCER
     Dosage: UNK
     Route: 005
     Dates: start: 201001, end: 201509

REACTIONS (12)
  - Nephrolithiasis [Unknown]
  - Pyelonephritis acute [Unknown]
  - Hydronephrosis [Unknown]
  - End stage renal disease [Unknown]
  - Nephrosclerosis [Unknown]
  - Dialysis [Unknown]
  - Renal failure [Unknown]
  - IgA nephropathy [Unknown]
  - Acute kidney injury [Unknown]
  - Chronic kidney disease [Unknown]
  - Renal injury [Unknown]
  - Nephropathy [Unknown]
